FAERS Safety Report 8445501-4 (Version None)
Quarter: 2012Q2

REPORT INFORMATION
  Report Type: 
  Country: None (occurrence: None)
  Receive Date: 20120618
  Receipt Date: 20120607
  Transmission Date: 20120825
  Serious: Yes (Other)
  Sender: FDA-Public Use
  Company Number: US-JNJFOC-20120605524

PATIENT
  Sex: Male
  Weight: 117.94 kg

DRUGS (5)
  1. RISPERDAL [Suspect]
     Route: 048
     Dates: start: 20120101
  2. INVEGA SUSTENNA [Suspect]
     Indication: BIPOLAR I DISORDER
     Route: 030
     Dates: start: 20120401
  3. COGENTIN [Suspect]
     Indication: BIPOLAR I DISORDER
     Route: 048
     Dates: start: 20120401
  4. DEPAKOTE ER [Suspect]
     Indication: BIPOLAR I DISORDER
     Route: 048
     Dates: start: 20120401
  5. RISPERDAL [Suspect]
     Indication: BIPOLAR I DISORDER
     Route: 048
     Dates: start: 20120401, end: 20120101

REACTIONS (4)
  - ANXIETY [None]
  - DEPRESSION [None]
  - SOMNOLENCE [None]
  - CONFUSIONAL STATE [None]
